FAERS Safety Report 9436861 (Version 2)
Quarter: 2013Q3

REPORT INFORMATION
  Report Type: Spontaneous
  Country: US (occurrence: US)
  Receive Date: 20130802
  Receipt Date: 20130820
  Transmission Date: 20140515
  Serious: No
  Sender: FDA-Public Use
  Company Number: US-PFIZER INC-2013219721

PATIENT
  Age: 50 Year
  Sex: Female
  Weight: 90.7 kg

DRUGS (4)
  1. XALATAN [Suspect]
     Indication: GLAUCOMA
     Dosage: UNK
     Route: 047
     Dates: start: 2007, end: 2012
  2. XALATAN [Suspect]
     Indication: OPEN ANGLE GLAUCOMA
     Dosage: ONE DROP AT NIGHT BOTH EYES
     Route: 047
     Dates: start: 20100729
  3. ATENOLOL [Concomitant]
     Indication: HYPERTENSION
     Dosage: 80 MG, 1X/DAY
  4. NORCO [Concomitant]
     Indication: PAIN
     Dosage: UNK

REACTIONS (3)
  - Vision blurred [Unknown]
  - Headache [Unknown]
  - Weight increased [Unknown]
